FAERS Safety Report 24541886 (Version 2)
Quarter: 2024Q4

REPORT INFORMATION
  Report Type: Report from Study
  Country: US (occurrence: US)
  Receive Date: 20241023
  Receipt Date: 20241106
  Transmission Date: 20250115
  Serious: Yes (Death, Other)
  Sender: JAZZ
  Company Number: US-JAZZ PHARMACEUTICALS-2024-US-018904

PATIENT
  Sex: Male

DRUGS (1)
  1. DEFITELIO [Suspect]
     Active Substance: DEFIBROTIDE SODIUM
     Indication: Product used for unknown indication
     Dosage: UNK

REACTIONS (1)
  - Multiple organ dysfunction syndrome [Fatal]
